FAERS Safety Report 22218852 (Version 6)
Quarter: 2025Q1

REPORT INFORMATION
  Report Type: Spontaneous
  Country: US (occurrence: US)
  Receive Date: 20230417
  Receipt Date: 20250220
  Transmission Date: 20250409
  Serious: Yes (Other)
  Sender: PFIZER
  Company Number: US-PFIZER INC-2021236613

PATIENT
  Age: 88 Year
  Sex: Female

DRUGS (18)
  1. XELJANZ [Suspect]
     Active Substance: TOFACITINIB CITRATE
     Indication: Colitis ulcerative
     Dates: end: 2020
  2. XELJANZ [Suspect]
     Active Substance: TOFACITINIB CITRATE
     Dosage: 5MG ONCE A DAY
     Route: 048
  3. SOLIQUA 100/33 [Concomitant]
     Active Substance: INSULIN GLARGINE\LIXISENATIDE
  4. TRAVOPROST [Concomitant]
     Active Substance: TRAVOPROST
  5. CLONIDINE [Concomitant]
     Active Substance: CLONIDINE
  6. LOPERAMIDE HYDROCHLORIDE [Concomitant]
     Active Substance: LOPERAMIDE HYDROCHLORIDE
  7. MAGNESIUM [Concomitant]
     Active Substance: MAGNESIUM
  8. TYLENOL [Concomitant]
     Active Substance: ACETAMINOPHEN
  9. NITROSTAT [Concomitant]
     Active Substance: NITROGLYCERIN
  10. PANTOPRAZOLE [Concomitant]
     Active Substance: PANTOPRAZOLE
  11. HYDROCHLOROTHIAZIDE [Concomitant]
     Active Substance: HYDROCHLOROTHIAZIDE
  12. LOSARTAN [Concomitant]
     Active Substance: LOSARTAN
  13. VITAMIN D2 [Concomitant]
     Active Substance: ERGOCALCIFEROL
  14. SYNTHROID [Concomitant]
     Active Substance: LEVOTHYROXINE SODIUM
  15. HERBALS\TURMERIC [Concomitant]
     Active Substance: HERBALS\TURMERIC
  16. BRIMONIDINE [Concomitant]
     Active Substance: BRIMONIDINE TARTRATE
  17. LIOTHYRONINE [Concomitant]
     Active Substance: LIOTHYRONINE
     Indication: Thyroid disorder
  18. AMLODIPINE [Concomitant]
     Active Substance: AMLODIPINE BESYLATE
     Indication: Cardiac disorder

REACTIONS (4)
  - Hip surgery [Unknown]
  - Influenza [Unknown]
  - Off label use [Unknown]
  - Product prescribing issue [Unknown]

NARRATIVE: CASE EVENT DATE: 20200101
